FAERS Safety Report 7842865-7 (Version None)
Quarter: 2011Q4

REPORT INFORMATION
  Report Type: 
  Country: None (occurrence: None)
  Receive Date: 20111024
  Receipt Date: 20111024
  Transmission Date: 20120403
  Serious: Yes (Disabling, Other)
  Sender: FDA-Public Use
  Company Number: None

PATIENT
  Age: 30 Year
  Sex: Female
  Weight: 62.5964 kg

DRUGS (1)
  1. FLAGYL [Suspect]
     Indication: DIARRHOEA
     Dosage: 500MG 2X DAY ORAL
     Route: 048
     Dates: start: 20110614, end: 20110618

REACTIONS (9)
  - MUSCLE TWITCHING [None]
  - DYSPEPSIA [None]
  - VISUAL IMPAIRMENT [None]
  - HEADACHE [None]
  - PHOTOPSIA [None]
  - FORMICATION [None]
  - INSOMNIA [None]
  - TINNITUS [None]
  - RETCHING [None]
